FAERS Safety Report 4891223-6 (Version None)
Quarter: 2006Q1

REPORT INFORMATION
  Report Type: 
  Country: None (occurrence: None)
  Receive Date: 20060120
  Receipt Date: 20060112
  Transmission Date: 20060701
  Serious: Yes (Hospitalization, Other)
  Sender: FDA-Public Use
  Company Number: 200514392GDS

PATIENT
  Age: 78 Year
  Sex: Male

DRUGS (9)
  1. ACETYLSALICYLIC ACID SRT [Suspect]
     Dosage: 100 MG, TOTAL DAILY, UNK
  2. ACENOCOUMAROL [Suspect]
  3. ATENOLOL [Suspect]
     Dosage: 100 MG, TOTAL, DAILY, UNK
  4. BUMETANIDE [Suspect]
     Dosage: 2 MG, TOTAL DAILY, UNK; 4 MG, TOTAL DAILY, UNK
  5. SPIRONOLACTONE [Suspect]
     Dosage: 12.5 MG, TOTAL DAILY; UNK
  6. DIGOXIN [Suspect]
     Dosage: 0.125 MG, TOTAL DAILY, UNK
  7. PERINDOPRIL [Suspect]
     Dosage: 1 MG, TOTAL DAILY, UNK
  8. SIMVASTATIN [Concomitant]
  9. DUTASTERIDE [Concomitant]

REACTIONS (8)
  - ANAEMIA [None]
  - BLOOD PRESSURE DIASTOLIC DECREASED [None]
  - DRUG INTERACTION [None]
  - GASTRIC ULCER HAEMORRHAGE [None]
  - HEART RATE IRREGULAR [None]
  - HYPERKALAEMIA [None]
  - PLATELET DISORDER [None]
  - RENAL FAILURE [None]
